FAERS Safety Report 10150163 (Version 1)
Quarter: 2014Q2

REPORT INFORMATION
  Report Type: Spontaneous
  Country: IT (occurrence: IT)
  Receive Date: 20140502
  Receipt Date: 20140502
  Transmission Date: 20141212
  Serious: Yes (Hospitalization)
  Sender: FDA-Public Use
  Company Number: IT-GLAXOSMITHKLINE-B0990341A

PATIENT
  Age: 76 Year
  Sex: Male

DRUGS (9)
  1. LEVOXACIN [Suspect]
     Indication: CHEMOTHERAPY
     Dosage: 500MG PER DAY
     Route: 048
     Dates: start: 20140210, end: 20140220
  2. BACTRIM [Suspect]
     Indication: CHEMOTHERAPY
     Route: 065
     Dates: start: 20140210, end: 20140310
  3. ALKERAN [Suspect]
     Indication: PLASMA CELL MYELOMA
     Dosage: 2MG EIGHT TIMES PER DAY
     Route: 048
     Dates: start: 20140212, end: 20140215
  4. BORTEZOMIB [Suspect]
     Indication: PLASMA CELL MYELOMA
     Dosage: 2.4MG PER DAY
     Route: 065
     Dates: start: 20140212, end: 20140215
  5. FILGRASTIM [Suspect]
     Indication: CHEMOTHERAPY
     Dosage: 30IU PER DAY
     Route: 065
     Dates: start: 20140217, end: 20140221
  6. ZOVIRAX [Suspect]
     Indication: CHEMOTHERAPY
     Dosage: 800MG PER DAY
     Route: 065
     Dates: start: 20140210, end: 20140316
  7. LASIX [Concomitant]
  8. CARDIOASPIRIN [Concomitant]
  9. RAMIPRIL [Concomitant]

REACTIONS (2)
  - Erythema [Recovering/Resolving]
  - Pruritus [Recovering/Resolving]
